FAERS Safety Report 12797498 (Version 1)
Quarter: 2016Q3

REPORT INFORMATION
  Report Type: Report from Study
  Country: US (occurrence: US)
  Receive Date: 20160930
  Receipt Date: 20160930
  Transmission Date: 20161109
  Serious: Yes (Other)
  Sender: FDA-Public Use
  Company Number: US-ROCHE-1836119

PATIENT
  Age: 38 Year
  Sex: Female
  Weight: 84.8 kg

DRUGS (17)
  1. BEVACIZUMAB [Suspect]
     Active Substance: BEVACIZUMAB
     Route: 042
     Dates: start: 20140821
  2. VELIPARIB [Suspect]
     Active Substance: VELIPARIB
     Route: 048
     Dates: start: 20140613
  3. VELIPARIB [Suspect]
     Active Substance: VELIPARIB
     Route: 048
     Dates: start: 20140821
  4. PACLITAXEL. [Suspect]
     Active Substance: PACLITAXEL
     Indication: OVARIAN EPITHELIAL CANCER
     Route: 042
  5. BEVACIZUMAB [Suspect]
     Active Substance: BEVACIZUMAB
     Route: 042
     Dates: start: 20141002
  6. CARBOPLATIN. [Suspect]
     Active Substance: CARBOPLATIN
     Indication: OVARIAN EPITHELIAL CANCER
     Route: 042
  7. BEVACIZUMAB [Suspect]
     Active Substance: BEVACIZUMAB
     Route: 042
     Dates: start: 20140703
  8. VELIPARIB [Suspect]
     Active Substance: VELIPARIB
     Indication: OVARIAN EPITHELIAL CANCER
     Route: 048
     Dates: start: 20140415
  9. VELIPARIB [Suspect]
     Active Substance: VELIPARIB
     Route: 048
     Dates: start: 20140516
  10. BEVACIZUMAB [Suspect]
     Active Substance: BEVACIZUMAB
     Route: 042
     Dates: start: 20140613
  11. BEVACIZUMAB [Suspect]
     Active Substance: BEVACIZUMAB
     Route: 042
     Dates: start: 20141023
  12. VELIPARIB [Suspect]
     Active Substance: VELIPARIB
     Route: 048
     Dates: start: 20140703
  13. VELIPARIB [Suspect]
     Active Substance: VELIPARIB
     Route: 048
     Dates: start: 20140731
  14. BEVACIZUMAB [Suspect]
     Active Substance: BEVACIZUMAB
     Indication: OVARIAN EPITHELIAL CANCER
     Route: 042
     Dates: start: 20140516
  15. BEVACIZUMAB [Suspect]
     Active Substance: BEVACIZUMAB
     Route: 042
     Dates: start: 20140731
  16. BEVACIZUMAB [Suspect]
     Active Substance: BEVACIZUMAB
     Route: 042
     Dates: start: 20140911
  17. BEVACIZUMAB [Suspect]
     Active Substance: BEVACIZUMAB
     Route: 042
     Dates: start: 20141112

REACTIONS (2)
  - Neutrophil count decreased [Unknown]
  - Anaemia [Unknown]
